FAERS Safety Report 4782205-3 (Version None)
Quarter: 2005Q3

REPORT INFORMATION
  Report Type: 
  Country: None (occurrence: None)
  Receive Date: 20050927
  Receipt Date: 20050812
  Transmission Date: 20060218
  Serious: No
  Sender: FDA-Public Use
  Company Number: US_0508120833

PATIENT
  Sex: Female

DRUGS (1)
  1. STRATTERA [Suspect]
     Indication: ATTENTION DEFICIT/HYPERACTIVITY DISORDER
     Dosage: 25 MG DAY
     Dates: start: 20050101

REACTIONS (2)
  - DELUSION [None]
  - HALLUCINATION, VISUAL [None]
